FAERS Safety Report 9506541 (Version 2)
Quarter: 2014Q1

REPORT INFORMATION
  Report Type: Spontaneous
  Country: US (occurrence: None)
  Receive Date: 20130305
  Receipt Date: 20140306
  Transmission Date: 20141002
  Serious: Yes (Hospitalization)
  Sender: FDA-Public Use
  Company Number: 163-21880-12111263

PATIENT
  Age: 74 Year
  Sex: Male
  Weight: 75.3 kg

DRUGS (28)
  1. REVLIMID [Suspect]
     Indication: PLASMA CELL MYELOMA
     Dosage: 25 MG, 21 IN 28 D, PO
     Route: 048
     Dates: start: 20121017
  2. DRISDOL [Concomitant]
  3. SODIUM BICARBONATE [Concomitant]
  4. ALOXI (PALONOSETRON HYDROCHLORIDE) INJECTION, 0.25MG/5ML [Concomitant]
  5. AMIODARONE HCL (AMIODARONE HYDROCHLORIDE) [Concomitant]
  6. ATORVASTATIN  CALCIUM (ATORVASTATIN CALCIUM) [Concomitant]
  7. BABY ASPIRIN [Concomitant]
  8. CALCIUM (CALCIUM) [Concomitant]
  9. CLONIDINE HCL (CLONIDINE HYDROCHLORIDE) INJECTION [Concomitant]
  10. COUMADIN (WARFARIN SODIUM) [Concomitant]
  11. DILTIAZEM 24HR ER (DILTIAZEM HYDROCHLORIDE) [Concomitant]
  12. FLOMAX (TAMSULOSIN HYDROCHLORIDE) [Concomitant]
  13. LASIX (FUROSEMIDE) [Concomitant]
  14. VELCADE (BORTEZOMIB) [Concomitant]
  15. CALCIUM ACETATE (CALCIUM ACETATE) [Concomitant]
  16. FERROUS SULFATE (FERROUS SULFATE) [Concomitant]
  17. KLOR-CON M20 (POTASSIUM CHLORIDE) [Concomitant]
  18. MAG-OXIDE [Concomitant]
  19. NIACIN (NICOTINIC ACID) [Concomitant]
  20. PANTOPRAZOLE SODIUM (PANTOPRAZOLE SODIUM) ) [Concomitant]
  21. METOPROLOL TARTRATE (METOPROLOL TARTRATE) [Concomitant]
  22. TAMSULOSIN HCL (TAMSULOSIN HYDROCHLORIDE) [Concomitant]
  23. DIGOXIN (DIGOXIN) [Concomitant]
  24. DOCUSATE SODIUM (DOCUSATE SODIUM) [Concomitant]
  25. MIDODRINE (MIDODRINE) [Concomitant]
  26. NUCYNTA (TAPENTADOL HYDROCHLORIDE) [Concomitant]
  27. PRAVASTATIN (PRAVASTATIN) [Concomitant]
  28. SYMBICORT (SYMBICORT TURBUHALER ^DRACO^) [Concomitant]

REACTIONS (4)
  - Atrial fibrillation [None]
  - Orthostatic hypotension [None]
  - Heart rate increased [None]
  - Malaise [None]
